FAERS Safety Report 12682539 (Version 1)
Quarter: 2016Q3

REPORT INFORMATION
  Report Type: Spontaneous
  Country: ES (occurrence: ES)
  Receive Date: 20160825
  Receipt Date: 20160825
  Transmission Date: 20161109
  Serious: Yes (Other)
  Sender: FDA-Public Use
  Company Number: ES-BRISTOL-MYERS SQUIBB COMPANY-BMS-2016-069942

PATIENT
  Age: 82 Year
  Sex: Male

DRUGS (1)
  1. ABILIFY [Suspect]
     Active Substance: ARIPIPRAZOLE
     Indication: VASCULAR DEMENTIA
     Dosage: 10 MG, BID
     Route: 048
     Dates: start: 20160715, end: 20160716

REACTIONS (3)
  - Drug prescribing error [Recovered/Resolved]
  - Depressed level of consciousness [Recovered/Resolved]
  - Product use issue [Unknown]

NARRATIVE: CASE EVENT DATE: 20160715
